FAERS Safety Report 7914624-8 (Version None)
Quarter: 2011Q4

REPORT INFORMATION
  Report Type: 
  Country: None (occurrence: None)
  Receive Date: 20111115
  Receipt Date: 20111107
  Transmission Date: 20120403
  Serious: Yes (Death, Hospitalization, Other)
  Sender: FDA-Public Use
  Company Number: PHHY2011VE098633

PATIENT
  Sex: Female

DRUGS (10)
  1. ZOLEDRONOC ACID [Suspect]
     Indication: OSTEOPOROSIS
     Dosage: 5 MG, UNK
     Route: 042
     Dates: start: 20100501
  2. LIPITOR [Concomitant]
     Indication: BLOOD CHOLESTEROL ABNORMAL
     Dosage: DAILY
  3. FOLIC ACID [Concomitant]
     Dosage: DAILY
  4. ACEMETACIN [Concomitant]
     Indication: PAIN
     Dosage: UNK UKN, UNK
  5. ALTACE [Concomitant]
     Indication: BLOOD PRESSURE ABNORMAL
     Dosage: UNK UKN, UNK
  6. PLAVIX [Concomitant]
     Indication: BLOOD PRESSURE
     Dosage: ONE TABLET DIALY
  7. NEXIUM [Concomitant]
     Indication: ULCER
     Dosage: DAILY
  8. CARVEDILOL [Concomitant]
     Indication: BLOOD PRESSURE ABNORMAL
     Dosage: TWO TABLETS TWICE A DAY
     Route: 048
  9. VITAMIN B COMPLEX CAP [Concomitant]
     Dosage: DIARY AS SUPPLEMENT
  10. L-CARNITINE [Concomitant]
     Indication: INCREASED APPETITE
     Dosage: DAILY

REACTIONS (4)
  - CARDIAC DISORDER [None]
  - RESPIRATORY DISORDER [None]
  - MYOCARDIAL INFARCTION [None]
  - ANGINA UNSTABLE [None]
